FAERS Safety Report 9655918 (Version 1)
Quarter: 2013Q4

REPORT INFORMATION
  Report Type: Spontaneous
  Country: US (occurrence: US)
  Receive Date: 20131030
  Receipt Date: 20131030
  Transmission Date: 20140711
  Serious: No
  Sender: FDA-Public Use
  Company Number: US-009507513-1310USA011682

PATIENT
  Sex: Male

DRUGS (3)
  1. VICTRELIS [Suspect]
     Indication: HEPATITIS C
     Dosage: 4 CAPSULES THREE TIMES A DAY
     Route: 048
     Dates: start: 201303
  2. PEGINTRON [Suspect]
     Indication: HEPATITIS C
     Dosage: 150 MCG VIAL, 0.4 ML WEEKLY
     Route: 058
     Dates: start: 201303
  3. REBETOL [Suspect]
     Dosage: UNK
     Route: 048
     Dates: start: 201303

REACTIONS (4)
  - Somnolence [Not Recovered/Not Resolved]
  - Fatigue [Not Recovered/Not Resolved]
  - Drug dose omission [Unknown]
  - Inappropriate schedule of drug administration [Unknown]
